FAERS Safety Report 18625331 (Version 2)
Quarter: 2020Q4

REPORT INFORMATION
  Report Type: Spontaneous
  Country: US (occurrence: US)
  Receive Date: 20201216
  Receipt Date: 20201216
  Transmission Date: 20210114
  Serious: Yes (Death, Hospitalization, Other)
  Sender: FDA-Public Use
  Company Number: US-CELGENEUS-USA-20201204311

PATIENT
  Age: 83 Year
  Sex: Male

DRUGS (1)
  1. REVLIMID [Suspect]
     Active Substance: LENALIDOMIDE
     Indication: PLASMA CELL MYELOMA
     Dosage: 5 MILLIGRAM
     Route: 048
     Dates: start: 20190621, end: 20200721

REACTIONS (4)
  - Coronary artery disease [Recovering/Resolving]
  - Cardiac failure congestive [Fatal]
  - Acute respiratory failure [Fatal]
  - Blood loss anaemia [Fatal]
